FAERS Safety Report 9065040 (Version 2)
Quarter: 2013Q1

REPORT INFORMATION
  Report Type: Spontaneous
  Country: PE (occurrence: PE)
  Receive Date: 20130128
  Receipt Date: 20130213
  Transmission Date: 20140127
  Serious: Yes (Other)
  Sender: FDA-Public Use
  Company Number: PHHY2013PE006489

PATIENT
  Age: 79 Year
  Sex: Female

DRUGS (3)
  1. ZOLEDRONIC ACID [Suspect]
     Indication: OSTEOPOROSIS
     Dosage: UNK
     Dates: start: 201207
  2. EUTIROX [Concomitant]
     Indication: HYPOTHYROIDISM
     Dosage: 75 MG, QD
  3. LOSARTAN [Concomitant]
     Indication: HYPERTENSION

REACTIONS (9)
  - Leukocytosis [Unknown]
  - Hypergammaglobulinaemia [Unknown]
  - Lymphadenopathy [Unknown]
  - Purpura [Unknown]
  - Anaemia [Unknown]
  - Discomfort [Unknown]
  - Confusional state [Unknown]
  - Abscess [Unknown]
  - Dehydration [Unknown]
